FAERS Safety Report 8429970-1 (Version None)
Quarter: 2012Q2

REPORT INFORMATION
  Report Type: 
  Country: None (occurrence: None)
  Receive Date: 20120612
  Receipt Date: 20120607
  Transmission Date: 20120825
  Serious: Yes (Other)
  Sender: FDA-Public Use
  Company Number: BE-BAYER-2012-057702

PATIENT
  Age: 57 Year
  Sex: Male

DRUGS (8)
  1. PANTOPRAZOLE [Concomitant]
  2. EZETIMIBE [Concomitant]
  3. ATACAND [Concomitant]
  4. MOXIFLOXACIN [Suspect]
     Indication: SINUSITIS
     Dosage: 400 MG, QD
     Route: 048
     Dates: start: 20120604, end: 20120605
  5. NOBITEN [Concomitant]
  6. ALLOPURINOL [Concomitant]
  7. METFORMIN HCL [Concomitant]
     Dosage: 850 MG, BID
  8. ASPIRIN [Concomitant]

REACTIONS (2)
  - DYSPNOEA [None]
  - CARDIAC FAILURE [None]
